FAERS Safety Report 16752451 (Version 9)
Quarter: 2019Q3

REPORT INFORMATION
  Report Type: Report from Study
  Country: FR (occurrence: FR)
  Receive Date: 20190828
  Receipt Date: 20190923
  Transmission Date: 20191005
  Serious: Yes (Hospitalization)
  Sender: FDA-Public Use
  Company Number: FR-EISAI MEDICAL RESEARCH-EC-2019-061340

PATIENT
  Age: 71 Year
  Sex: Male
  Weight: 81.2 kg

DRUGS (13)
  1. LENVATINIB [Suspect]
     Active Substance: LENVATINIB
     Indication: HEPATOCELLULAR CARCINOMA
     Dosage: 12 MILLIGRAM (BW WEIGHT [BW] GREATER THAN OR EQUAL TO (=) 60 KG
     Route: 048
     Dates: start: 20190717, end: 20190804
  2. FUROSEMIDE. [Concomitant]
     Active Substance: FUROSEMIDE
     Dates: start: 20190702
  3. TIORFAN [Concomitant]
     Active Substance: RACECADOTRIL
     Dates: start: 20190805
  4. COVERAM [Concomitant]
     Active Substance: AMLODIPINE\PERINDOPRIL
     Dates: start: 201906
  5. LENVATINIB [Suspect]
     Active Substance: LENVATINIB
     Dosage: 8 MILLIGRAM (BW WEIGHT [BW] GREATER THAN OR EQUAL TO (=) 60 KG
     Route: 048
     Dates: start: 20190805, end: 20190811
  6. DIFFU-K [Concomitant]
     Active Substance: POTASSIUM CHLORIDE
     Dates: start: 20190726, end: 20190801
  7. DEXERYL CREAM [Concomitant]
     Active Substance: GLYCERIN\MINERAL OIL\PETROLATUM
     Dates: start: 20190805
  8. SODIUM BICARBONATE. [Concomitant]
     Active Substance: SODIUM BICARBONATE
     Dates: start: 20190805
  9. XATRAL [Concomitant]
     Active Substance: ALFUZOSIN
     Dates: start: 201906
  10. LOPERAMIDE [Concomitant]
     Active Substance: LOPERAMIDE
     Dates: start: 20190702
  11. PEMBROLIZUMAB. [Suspect]
     Active Substance: PEMBROLIZUMAB
     Indication: HEPATOCELLULAR CARCINOMA
     Dosage: BLINDED
     Route: 041
     Dates: start: 20190717, end: 20190717
  12. IMOVANE [Concomitant]
     Active Substance: ZOPICLONE
     Dates: start: 20190702
  13. TOPALGIC [Concomitant]
     Dates: start: 20190805

REACTIONS (1)
  - Haemorrhoidal haemorrhage [Recovered/Resolved]

NARRATIVE: CASE EVENT DATE: 20190805
